FAERS Safety Report 9956011 (Version 2)
Quarter: 2014Q1

REPORT INFORMATION
  Report Type: Spontaneous
  Country: DK (occurrence: DK)
  Receive Date: 20140304
  Receipt Date: 20140318
  Transmission Date: 20141002
  Serious: Yes (Other)
  Sender: FDA-Public Use
  Company Number: DK-BAXTER-2014BAX010086

PATIENT
  Age: 48 Year
  Sex: Female

DRUGS (10)
  1. SENDOXAN [Suspect]
     Indication: PRODUCT USED FOR UNKNOWN INDICATION
     Dosage: CMF TREATMENT REGIMEN
     Route: 065
     Dates: start: 201106, end: 20111104
  2. NAVELBINE [Suspect]
     Indication: PRODUCT USED FOR UNKNOWN INDICATION
     Route: 065
     Dates: start: 20111104, end: 20120106
  3. FLUOROURACIL [Suspect]
     Indication: PRODUCT USED FOR UNKNOWN INDICATION
     Dosage: CMF TREATMENT REGIMEN
     Route: 065
     Dates: start: 201106, end: 20111104
  4. ERIBULIN [Suspect]
     Indication: PRODUCT USED FOR UNKNOWN INDICATION
     Route: 065
     Dates: start: 20130829
  5. GEMCITABINE [Suspect]
     Indication: PRODUCT USED FOR UNKNOWN INDICATION
     Route: 065
     Dates: start: 20120918
  6. HERCEPTIN [Suspect]
     Indication: PRODUCT USED FOR UNKNOWN INDICATION
     Dosage: IN COMBINATION WITH ERIBULIN
     Route: 065
     Dates: start: 20130829
  7. HERCEPTIN [Suspect]
     Dosage: IN COMBINATION WITH GEMCITABINE
     Route: 065
     Dates: start: 20120918
  8. METHOTREXATE [Suspect]
     Indication: PRODUCT USED FOR UNKNOWN INDICATION
     Dosage: CMF TREATMENT REGIMEN
     Route: 065
     Dates: start: 201106, end: 20111104
  9. TAXOL [Suspect]
     Indication: PRODUCT USED FOR UNKNOWN INDICATION
     Route: 065
     Dates: start: 20120110, end: 20120911
  10. XELODA [Suspect]
     Indication: PRODUCT USED FOR UNKNOWN INDICATION
     Route: 065
     Dates: start: 201009

REACTIONS (2)
  - Disease progression [Not Recovered/Not Resolved]
  - Hepatic steatosis [Unknown]
